FAERS Safety Report 23981754 (Version 1)
Quarter: 2024Q2

REPORT INFORMATION
  Report Type: Spontaneous
  Country: CA (occurrence: None)
  Receive Date: 20240615
  Receipt Date: 20240615
  Transmission Date: 20240715
  Serious: Yes (Disabling)
  Sender: FDA-Public Use
  Company Number: None

PATIENT
  Age: 24 Year
  Sex: Female
  Weight: 88.65 kg

DRUGS (2)
  1. NORLUTATE [Suspect]
     Active Substance: NORETHINDRONE ACETATE
     Indication: Endometriosis
     Dosage: 1 TABLET DAILY ORAL?
     Route: 048
     Dates: start: 20240510, end: 20240610
  2. FLUCONAZOLE [Concomitant]
     Active Substance: FLUCONAZOLE

REACTIONS (11)
  - Nausea [None]
  - Dizziness [None]
  - Fatigue [None]
  - Brain fog [None]
  - Headache [None]
  - Confusional state [None]
  - Hypotension [None]
  - Therapy cessation [None]
  - Impaired work ability [None]
  - Acne [None]
  - Progesterone decreased [None]

NARRATIVE: CASE EVENT DATE: 20240522
